FAERS Safety Report 8182678-2 (Version None)
Quarter: 2012Q1

REPORT INFORMATION
  Report Type: 
  Country: None (occurrence: None)
  Receive Date: 20120305
  Receipt Date: 20120228
  Transmission Date: 20120608
  Serious: No
  Sender: FDA-Public Use
  Company Number: US-PFIZER INC-2012053686

PATIENT
  Sex: Male

DRUGS (2)
  1. CHANTIX [Suspect]
     Indication: SMOKING CESSATION THERAPY
     Dosage: 0.5 MG, DAILY
     Dates: start: 20110728, end: 20110101
  2. CHANTIX [Suspect]
     Dosage: UNK
     Dates: start: 20110101, end: 20111010

REACTIONS (4)
  - WEIGHT INCREASED [None]
  - MIDDLE INSOMNIA [None]
  - GENERAL PHYSICAL CONDITION ABNORMAL [None]
  - FATIGUE [None]
